FAERS Safety Report 5277995-X (Version None)
Quarter: 2007Q1

REPORT INFORMATION
  Report Type: 
  Country: None (occurrence: None)
  Receive Date: 20070321
  Receipt Date: 20070309
  Transmission Date: 20070707
  Serious: Yes (Hospitalization)
  Sender: FDA-Public Use
  Company Number: S07-FRA-01197-01

PATIENT
  Age: 82 Year
  Sex: Male

DRUGS (6)
  1. CITALOPRAM HYDROBROMIDE [Suspect]
     Dosage: 10 MG BID PO
     Route: 048
     Dates: start: 20070115, end: 20070119
  2. TENORMIN [Suspect]
     Dosage: 50 MG QD PO
     Route: 048
     Dates: end: 20070119
  3. PREVISCAN (FLUINDIONE) [Concomitant]
  4. RAMIPRIL [Concomitant]
  5. VASTAREL (TRIMETAZIDINE HYDROCHLORIDE) [Concomitant]
  6. DIOVENOR (DIOSMIN) [Concomitant]

REACTIONS (11)
  - BLOOD CREATININE DECREASED [None]
  - BRAIN NATRIURETIC PEPTIDE INCREASED [None]
  - CARDIAC FAILURE [None]
  - FALL [None]
  - HYPOALBUMINAEMIA [None]
  - HYPONATRAEMIA [None]
  - MUSCULAR WEAKNESS [None]
  - OEDEMA [None]
  - PLEURAL DISORDER [None]
  - RALES [None]
  - URINE SODIUM DECREASED [None]
